FAERS Safety Report 23375909 (Version 3)
Quarter: 2024Q1

REPORT INFORMATION
  Report Type: Spontaneous
  Country: US (occurrence: US)
  Receive Date: 20240108
  Receipt Date: 20240305
  Transmission Date: 20240410
  Serious: Yes (Other)
  Sender: FDA-Public Use
  Company Number: US-PFIZER INC-202300455994

PATIENT
  Age: 84 Year
  Sex: Female
  Weight: 103.42 kg

DRUGS (11)
  1. VYNDAMAX [Suspect]
     Active Substance: TAFAMIDIS
     Indication: Cardiac disorder
     Dosage: 61 MG, 1X/DAY
  2. VYNDAMAX [Suspect]
     Active Substance: TAFAMIDIS
     Dosage: UNK
  3. LEVOTHYROXINE [Concomitant]
     Active Substance: LEVOTHYROXINE\LEVOTHYROXINE SODIUM
     Indication: Thyroid disorder
     Dosage: 0.075 MG, 1X/DAY
  4. METOPROLOL [Concomitant]
     Active Substance: METOPROLOL
     Dosage: 75 MG, 1X/DAY
  5. PANTOPRAZOLE [Concomitant]
     Active Substance: PANTOPRAZOLE
     Dosage: 40 MG, 1X/DAY
  6. ENTRESTO [Concomitant]
     Active Substance: SACUBITRIL\VALSARTAN
     Dosage: 24/26 MILLIGRAMS
  7. SPIRONOLACTONE [Concomitant]
     Active Substance: SPIRONOLACTONE
     Dosage: UNK
  8. TORSEMIDE [Concomitant]
     Active Substance: TORSEMIDE
     Dosage: UNK, 1X/DAY
  9. WARFARIN [Concomitant]
     Active Substance: WARFARIN
     Dosage: 5 MG, 1X/DAY
  10. MAGNESIUM [Concomitant]
     Active Substance: MAGNESIUM
     Dosage: 500 MG, 1X/DAY
  11. LORATADINE [Concomitant]
     Active Substance: LORATADINE
     Indication: Hypersensitivity
     Dosage: UNK, 1X/DAY

REACTIONS (3)
  - Arthritis [Not Recovered/Not Resolved]
  - Arthralgia [Not Recovered/Not Resolved]
  - Crying [Unknown]

NARRATIVE: CASE EVENT DATE: 20180101
